FAERS Safety Report 5750320-3 (Version None)
Quarter: 2008Q2

REPORT INFORMATION
  Report Type: 
  Country: None (occurrence: None)
  Receive Date: 20080521
  Receipt Date: 20080521
  Transmission Date: 20081010
  Serious: No
  Sender: FDA-Public Use
  Company Number: None

PATIENT
  Age: 59 Year
  Sex: Female
  Weight: 59 kg

DRUGS (2)
  1. CYTOXAN [Suspect]
     Indication: AMYOTROPHIC LATERAL SCLEROSIS
     Dosage: 3000MG OVER 1 HOUR DAILY X2 DAYS IV BOLUS
     Route: 042
     Dates: start: 20080518, end: 20080519
  2. CYTOXAN [Suspect]

REACTIONS (1)
  - PAIN IN JAW [None]
